FAERS Safety Report 9265102 (Version 1)
Quarter: 2013Q2

REPORT INFORMATION
  Report Type: Spontaneous
  Country: DE (occurrence: None)
  Receive Date: 20130429
  Receipt Date: 20130429
  Transmission Date: 20140414
  Serious: Yes (Death)
  Sender: FDA-Public Use
  Company Number: GER/GER/13/0029222

PATIENT
  Age: 79 Year
  Sex: Female

DRUGS (5)
  1. METFORMIN (METFORMIN) [Suspect]
     Indication: DIABETES MELLITUS
  2. PRADAXA [Suspect]
     Indication: PERIPHERAL ARTERIAL OCCLUSIVE DISEASE
     Route: 048
     Dates: start: 20120820
  3. CLOPIDOGREL (CLOPIDOGREL) [Concomitant]
  4. OXYGESIC RET (OXYCODONE HYDROCHLORIDE) [Concomitant]
  5. NOVALGIN TROPFEN (NOVO-PETRIN) [Concomitant]

REACTIONS (15)
  - Hypotension [None]
  - Lactic acidosis [None]
  - Multi-organ failure [None]
  - Somnolence [None]
  - Post procedural complication [None]
  - Blood creatinine increased [None]
  - Blood urea increased [None]
  - Aspartate aminotransferase increased [None]
  - Alanine aminotransferase increased [None]
  - Activated partial thromboplastin time prolonged [None]
  - Thrombin time prolonged [None]
  - Haemoglobin decreased [None]
  - Blood glucose increased [None]
  - Continuous haemodiafiltration [None]
  - Gamma-glutamyltransferase increased [None]
